FAERS Safety Report 10957778 (Version 1)
Quarter: 2015Q1

REPORT INFORMATION
  Report Type: Report from Study
  Country: CZ (occurrence: CZ)
  Receive Date: 20150326
  Receipt Date: 20150326
  Transmission Date: 20150721
  Serious: Yes (Death, Life-Threatening)
  Sender: FDA-Public Use
  Company Number: CZ-CUBIST PHARMACEUTICALS, INC.-20150077

PATIENT
  Age: 73 Year
  Sex: Female
  Weight: 65 kg

DRUGS (6)
  1. VANCOMYCIN [Suspect]
     Active Substance: VANCOMYCIN
     Dosage: 125 MG, BID
     Route: 048
     Dates: start: 20150224, end: 20150224
  2. OLICLINOMEL [Concomitant]
     Active Substance: AMINO ACIDS\DEXTROSE\ELECTROLYTES NOS\SOYBEAN OIL
     Indication: MALNUTRITION
     Dosage: 2000 ML, QD
     Route: 042
     Dates: start: 20150304, end: 20150307
  3. CITALOPRAM [Concomitant]
     Active Substance: CITALOPRAM HYDROBROMIDE
     Indication: DEPRESSION
     Dosage: 20 MG, QD
     Route: 048
     Dates: end: 20150307
  4. LETROX [Concomitant]
     Indication: HYPOTHYROIDISM
     Dosage: 50 ?G, QD
     Route: 048
     Dates: end: 20150307
  5. VANCOMYCIN [Suspect]
     Active Substance: VANCOMYCIN
     Dosage: 125 MG, QID
     Route: 048
     Dates: start: 20150225, end: 20150305
  6. VANCOMYCIN [Suspect]
     Active Substance: VANCOMYCIN
     Dosage: 125 MG, BID
     Route: 048
     Dates: start: 20150306, end: 20150306

REACTIONS (2)
  - Cardiac failure [Fatal]
  - Sepsis [Fatal]

NARRATIVE: CASE EVENT DATE: 20150302
